FAERS Safety Report 4371979-1 (Version None)
Quarter: 2004Q2

REPORT INFORMATION
  Report Type: 
  Country: None (occurrence: None)
  Receive Date: 20040602
  Receipt Date: 20040520
  Transmission Date: 20050107
  Serious: Yes (Hospitalization, Other)
  Sender: FDA-Public Use
  Company Number: HQWYE037720MAY04

PATIENT
  Age: 54 Year
  Sex: Female

DRUGS (1)
  1. PREMARIN [Suspect]
     Indication: OESTROGEN REPLACEMENT THERAPY
     Dosage: 0.625 MG DAILY ORAL
     Route: 048
     Dates: start: 19930101, end: 20020101

REACTIONS (3)
  - ENDOMETRIOSIS [None]
  - METRORRHAGIA [None]
  - UTERINE NEOPLASM [None]
